FAERS Safety Report 17362407 (Version 1)
Quarter: 2020Q1

REPORT INFORMATION
  Report Type: Spontaneous
  Country: DK (occurrence: DK)
  Receive Date: 20200203
  Receipt Date: 20200203
  Transmission Date: 20200409
  Serious: Yes (Hospitalization)
  Sender: FDA-Public Use
  Company Number: DK-FRESENIUS KABI-FK202001054

PATIENT
  Age: 13 Year
  Sex: Female

DRUGS (4)
  1. VINCRISTINE [Suspect]
     Active Substance: VINCRISTINE
     Indication: HODGKIN^S DISEASE STAGE IV
  2. ETOPOSIDE (MANUFACTURER UNKNOWN) [Suspect]
     Active Substance: ETOPOSIDE
     Indication: HODGKIN^S DISEASE STAGE IV
     Dosage: FOR 5 DAYS
     Route: 065
  3. PREDNISOLONE. [Suspect]
     Active Substance: PREDNISOLONE
     Indication: HODGKIN^S DISEASE STAGE IV
  4. DOXORUBICIN [Suspect]
     Active Substance: DOXORUBICIN
     Indication: HODGKIN^S DISEASE STAGE IV

REACTIONS (3)
  - Neutropenic sepsis [Unknown]
  - Cardiac failure [Unknown]
  - Gastrointestinal haemorrhage [Unknown]
